FAERS Safety Report 15889350 (Version 1)
Quarter: 2019Q1

REPORT INFORMATION
  Report Type: Spontaneous
  Country: US (occurrence: US)
  Receive Date: 20190109
  Receipt Date: 20190109
  Transmission Date: 20190417
  Serious: Yes (Hospitalization)
  Sender: FDA-Public Use
  Company Number: None

PATIENT
  Age: 35 Year
  Sex: Female

DRUGS (10)
  1. MONTELUKAST [Suspect]
     Active Substance: MONTELUKAST SODIUM
     Indication: CYSTIC FIBROSIS
     Route: 048
     Dates: start: 20140122
  2. IPRATROPIUM [Concomitant]
     Active Substance: IPRATROPIUM
  3. ADVAIR HFA [Concomitant]
     Active Substance: FLUTICASONE PROPIONATE\SALMETEROL XINAFOATE
  4. LINEZOLID. [Concomitant]
     Active Substance: LINEZOLID
  5. LEVEMIR [Concomitant]
     Active Substance: INSULIN DETEMIR
  6. PREDNISONE. [Concomitant]
     Active Substance: PREDNISONE
  7. ACETYLCYSTEINE. [Concomitant]
     Active Substance: ACETYLCYSTEINE
  8. BACTRIM DS [Concomitant]
     Active Substance: SULFAMETHOXAZOLE\TRIMETHOPRIM
  9. OMEPRAZOLE. [Concomitant]
     Active Substance: OMEPRAZOLE
  10. ZOLPIDEM [Concomitant]
     Active Substance: ZOLPIDEM\ZOLPIDEM TARTRATE

REACTIONS (2)
  - Infective pulmonary exacerbation of cystic fibrosis [None]
  - Malaise [None]

NARRATIVE: CASE EVENT DATE: 20181210
